FAERS Safety Report 6136733-9 (Version None)
Quarter: 2009Q1

REPORT INFORMATION
  Report Type: 
  Country: None (occurrence: None)
  Receive Date: 20090330
  Receipt Date: 20090325
  Transmission Date: 20090719
  Serious: Yes (Death)
  Sender: FDA-Public Use
  Company Number: PHEH2009US03087

PATIENT
  Sex: Female
  Weight: 45.351 kg

DRUGS (1)
  1. RECLAST [Suspect]
     Dosage: 5 MG/100 ML
     Dates: start: 20090306

REACTIONS (1)
  - DEATH [None]
